FAERS Safety Report 19817473 (Version 3)
Quarter: 2021Q4

REPORT INFORMATION
  Report Type: Spontaneous
  Country: CO (occurrence: CO)
  Receive Date: 20210910
  Receipt Date: 20211111
  Transmission Date: 20220303
  Serious: Yes (Hospitalization, Other)
  Sender: FDA-Public Use
  Company Number: CO-BIOMARINAP-CO-2021-138496

PATIENT
  Age: 13 Year
  Sex: Female
  Weight: 20 kg

DRUGS (4)
  1. VIMIZIM [Suspect]
     Active Substance: ELOSULFASE ALFA
     Indication: Mucopolysaccharidosis IV
     Dosage: 40 MILLIGRAM, QW
     Route: 042
     Dates: start: 20160115
  2. VIMIZIM [Suspect]
     Active Substance: ELOSULFASE ALFA
     Dosage: UNK UNK, QW
     Route: 042
     Dates: start: 20120802
  3. ACETAMINOPHEN [Concomitant]
     Active Substance: ACETAMINOPHEN
     Indication: Premedication
  4. LORATADINE [Concomitant]
     Active Substance: LORATADINE
     Indication: Premedication

REACTIONS (14)
  - Spinal cord compression [Recovering/Resolving]
  - Cardiac arrest [Not Recovered/Not Resolved]
  - Hemiparesis [Recovering/Resolving]
  - Paraparesis [Recovering/Resolving]
  - Paraplegia [Recovering/Resolving]
  - Walking disability [Recovering/Resolving]
  - Gait disturbance [Recovering/Resolving]
  - Clumsiness [Recovering/Resolving]
  - Pain in extremity [Recovering/Resolving]
  - Hypertonia [Recovering/Resolving]
  - Hyperreflexia [Recovering/Resolving]
  - Clonus [Recovering/Resolving]
  - Hoffmann^s sign [Recovering/Resolving]
  - Pain [Unknown]

NARRATIVE: CASE EVENT DATE: 20180101
